FAERS Safety Report 7034808 (Version 9)
Quarter: 2013Q1

REPORT INFORMATION
  Report Type: Report from Study
  Country: BE (occurrence: BE)
  Receive Date: 20090626
  Receipt Date: 20130325
  Transmission Date: 20140127
  Serious: Yes (Hospitalization, Disabling)
  Sender: FDA-Public Use
  Company Number: BE-ABBOTT-09P-013-0580550-00

PATIENT
  Age: 50 Year
  Sex: Female

DRUGS (5)
  1. HUMIRA [Suspect]
     Indication: CROHN^S DISEASE
     Route: 058
     Dates: start: 20080410
  2. BECLOMETHASONE [Concomitant]
     Indication: CROHN^S DISEASE
     Dates: start: 200801
  3. SALAZOPYRINE [Concomitant]
     Indication: CROHN^S DISEASE
     Dates: start: 199712
  4. EMCONCOR [Concomitant]
     Indication: HYPERTENSION
  5. VITAMIN B12 [Concomitant]
     Indication: VITAMIN SUPPLEMENTATION

REACTIONS (1)
  - Cerebral infarction [Not Recovered/Not Resolved]
